FAERS Safety Report 11523082 (Version 1)
Quarter: 2015Q3

REPORT INFORMATION
  Report Type: Spontaneous
  Country: US (occurrence: US)
  Receive Date: 20150918
  Receipt Date: 20150918
  Transmission Date: 20151125
  Serious: No
  Sender: FDA-Public Use
  Company Number: US-ROCHE-656701

PATIENT
  Age: 60 Year
  Sex: Male
  Weight: 93 kg

DRUGS (7)
  1. PEGASYS [Suspect]
     Active Substance: PEGINTERFERON ALFA-2A
     Indication: HEPATITIS C
     Dosage: FORM: PRE-FILLED SYRINGE, PATIENT COMPLETED 48 WEEKS
     Route: 065
     Dates: start: 20090901, end: 20100727
  2. COPEGUS [Suspect]
     Active Substance: RIBAVIRIN
     Dosage: PATIENT COMPLETED 48 WEEKS
     Route: 048
  3. METFORMIN [Concomitant]
     Active Substance: METFORMIN HYDROCHLORIDE
     Route: 065
  4. COPEGUS [Suspect]
     Active Substance: RIBAVIRIN
     Indication: HEPATITIS C
     Route: 048
  5. RIBAVIRIN. [Suspect]
     Active Substance: RIBAVIRIN
     Indication: HEPATITIS C
     Route: 065
  6. WELLBUTRIN [Concomitant]
     Active Substance: BUPROPION HYDROCHLORIDE
     Route: 065
  7. LOSARTAN. [Concomitant]
     Active Substance: LOSARTAN
     Route: 065

REACTIONS (57)
  - Nasopharyngitis [Not Recovered/Not Resolved]
  - Anxiety [Unknown]
  - Dyspnoea [Unknown]
  - Arthralgia [Not Recovered/Not Resolved]
  - Depression [Recovering/Resolving]
  - Anaemia [Unknown]
  - Alopecia [Not Recovered/Not Resolved]
  - Clumsiness [Not Recovered/Not Resolved]
  - Dysphemia [Unknown]
  - Dry skin [Not Recovered/Not Resolved]
  - Weight decreased [Not Recovered/Not Resolved]
  - Abdominal distension [Not Recovered/Not Resolved]
  - Hepatic pain [Not Recovered/Not Resolved]
  - Tachyphrenia [Unknown]
  - Alopecia [Recovered/Resolved]
  - Hair texture abnormal [Unknown]
  - Disturbance in attention [Unknown]
  - Nausea [Unknown]
  - Dizziness [Not Recovered/Not Resolved]
  - Epistaxis [Unknown]
  - Blood urine present [Unknown]
  - Fear [Unknown]
  - Injection site erythema [Unknown]
  - Disorientation [Unknown]
  - Irritability [Not Recovered/Not Resolved]
  - Cough [Unknown]
  - Pruritus [Not Recovered/Not Resolved]
  - Splenomegaly [Unknown]
  - Abdominal pain upper [Unknown]
  - Feeling hot [Recovered/Resolved]
  - Dyspnoea exertional [Not Recovered/Not Resolved]
  - Rash [Not Recovered/Not Resolved]
  - Insomnia [Not Recovered/Not Resolved]
  - Memory impairment [Not Recovered/Not Resolved]
  - Feeling abnormal [Not Recovered/Not Resolved]
  - Diarrhoea [Unknown]
  - Visual acuity reduced [Not Recovered/Not Resolved]
  - Nausea [Not Recovered/Not Resolved]
  - Fatigue [Not Recovered/Not Resolved]
  - Dry mouth [Not Recovered/Not Resolved]
  - Apathy [Unknown]
  - Somnolence [Unknown]
  - Hepatomegaly [Unknown]
  - Hypersomnia [Unknown]
  - Fatigue [Unknown]
  - Abdominal pain upper [Not Recovered/Not Resolved]
  - Rash papular [Recovering/Resolving]
  - Abdominal pain [Not Recovered/Not Resolved]
  - Bone pain [Not Recovered/Not Resolved]
  - Dizziness [Unknown]
  - Arthritis [Unknown]
  - Pyrexia [Recovered/Resolved]
  - Pain [Unknown]
  - Rash macular [Unknown]
  - Blood triglycerides increased [Not Recovered/Not Resolved]
  - Social avoidant behaviour [Unknown]
  - Mental impairment [Not Recovered/Not Resolved]

NARRATIVE: CASE EVENT DATE: 20090902
